FAERS Safety Report 20894891 (Version 6)
Quarter: 2022Q3

REPORT INFORMATION
  Report Type: Report from Study
  Country: BR (occurrence: BR)
  Receive Date: 20220531
  Receipt Date: 20220901
  Transmission Date: 20221027
  Serious: Yes (Hospitalization)
  Sender: FDA-Public Use
  Company Number: BR-AMGEN-BRASL2022076263

PATIENT
  Age: 42 Year
  Sex: Female

DRUGS (11)
  1. VECTIBIX [Suspect]
     Active Substance: PANITUMUMAB
     Indication: Colorectal cancer
     Dosage: UNK, EVERY 15 DAYS
     Route: 042
     Dates: start: 20220401
  2. Volig [Concomitant]
     Indication: Nausea
     Dosage: UNK 8 MILLIGRAM EVERY 8 HOURS (UP TO 4 DAYS WHEN SHE FEELS SICK
  3. ALPRAZOLAM [Concomitant]
     Active Substance: ALPRAZOLAM
     Indication: Anxiety
     Dosage: UNK 0.5 1X A DAY AT NIGHT PROTECT THE STOMACH
  4. DEXAMETHASONE [Concomitant]
     Active Substance: DEXAMETHASONE
     Indication: Hypersensitivity
     Dosage: UNK 4MG TO 12 IN 12 HOURS
  5. PANTOPRAZOLE [Concomitant]
     Active Substance: PANTOPRAZOLE
     Indication: Abdominal pain upper
     Dosage: 40 MILLIGRAM  EVERY MORNING
  6. DIPYRONE [Concomitant]
     Active Substance: DIPYRONE
     Indication: Pain
     Dosage: UNK
  7. IBUPROFEN [Concomitant]
     Active Substance: IBUPROFEN
     Indication: Pain
     Dosage: UNK
  8. LEUCOVORIN [Concomitant]
     Active Substance: LEUCOVORIN
     Indication: Colorectal cancer
     Dosage: UNK
     Route: 065
  9. FLUOROURACIL [Concomitant]
     Active Substance: FLUOROURACIL
     Indication: Colorectal cancer
     Dosage: UNK
     Route: 065
  10. OXALIPLATIN [Concomitant]
     Active Substance: OXALIPLATIN
     Indication: Colorectal cancer
     Dosage: UNK
     Route: 065
  11. AZITHROMYCIN DIHYDRATE [Concomitant]
     Active Substance: AZITHROMYCIN DIHYDRATE
     Indication: Product used for unknown indication
     Route: 065

REACTIONS (19)
  - Acne pustular [Recovering/Resolving]
  - Pain of skin [Recovering/Resolving]
  - Constipation [Recovering/Resolving]
  - Nausea [Recovering/Resolving]
  - Asthenia [Unknown]
  - Pruritus [Recovering/Resolving]
  - Fatigue [Recovering/Resolving]
  - Hypersensitivity [Not Recovered/Not Resolved]
  - Alopecia [Recovering/Resolving]
  - Platelet count decreased [Recovering/Resolving]
  - Stress [Recovering/Resolving]
  - Malaise [Recovering/Resolving]
  - Abdominal distension [Recovering/Resolving]
  - Faecalith [Recovering/Resolving]
  - Hyperaesthesia [Recovering/Resolving]
  - Inappropriate schedule of product administration [Unknown]
  - Tongue discolouration [Not Recovered/Not Resolved]
  - Skin discolouration [Not Recovered/Not Resolved]
  - Pyrexia [Recovered/Resolved]

NARRATIVE: CASE EVENT DATE: 20220101
